FAERS Safety Report 14288477 (Version 1)
Quarter: 2017Q4

REPORT INFORMATION
  Report Type: Spontaneous
  Country: DE (occurrence: DE)
  Receive Date: 20171215
  Receipt Date: 20171215
  Transmission Date: 20180321
  Serious: Yes (Other)
  Sender: FDA-Public Use
  Company Number: DE-ASTRAZENECA-2017SF18146

PATIENT
  Age: 50 Year
  Sex: Female

DRUGS (1)
  1. OMEPRAZOLE MAGNESIUM. [Suspect]
     Active Substance: OMEPRAZOLE MAGNESIUM
     Route: 048
     Dates: start: 2008

REACTIONS (4)
  - Type I hypersensitivity [Unknown]
  - Dyspnoea [Unknown]
  - Drug intolerance [Unknown]
  - Urticaria [Unknown]

NARRATIVE: CASE EVENT DATE: 2008
